FAERS Safety Report 7211021-8 (Version None)
Quarter: 2011Q1

REPORT INFORMATION
  Report Type: 
  Country: None (occurrence: None)
  Receive Date: 20110105
  Receipt Date: 20101213
  Transmission Date: 20110831
  Serious: No
  Sender: FDA-Public Use
  Company Number: US-B.I. PHARMACEUTICALS,INC./RIDGEFIELD-2010-BP-14526BP

PATIENT
  Sex: Female

DRUGS (20)
  1. INSULIN VICTOZA [Concomitant]
     Indication: DIABETES MELLITUS
     Dosage: 1.25 MG
     Route: 058
  2. SINGULAIR [Concomitant]
     Indication: MULTIPLE ALLERGIES
     Dosage: 10 MG
     Route: 048
  3. CENTRUM SILVER [Concomitant]
     Route: 048
  4. FISH OIL [Concomitant]
     Dosage: 2400 MG
     Route: 048
  5. VITAMIN B-12 [Concomitant]
     Route: 048
  6. PROAIR HFA [Concomitant]
     Indication: LUNG DISORDER
     Route: 055
  7. FOLIC ACID [Concomitant]
     Dosage: 1 MG
     Route: 048
  8. MULTIVITAMIN [Concomitant]
     Route: 048
     Dates: start: 20101101
  9. CALCIUM AND VITAMIN D [Concomitant]
     Route: 048
  10. SYMBICORT [Concomitant]
     Route: 055
  11. METFORMIN [Concomitant]
     Indication: DIABETES MELLITUS
     Dosage: 500 MG
     Route: 048
  12. CVS STOOL SOFTENER [Concomitant]
     Indication: CONSTIPATION
     Route: 048
  13. LASIX [Concomitant]
     Indication: FLUID RETENTION
     Dosage: 40 MG
     Route: 048
  14. FLECAINIDE ACETATE [Concomitant]
     Indication: HEART RATE IRREGULAR
     Dosage: 200 MG
     Route: 048
  15. FOSAMAX [Concomitant]
     Route: 048
  16. PREDNISONE [Concomitant]
     Indication: LUNG DISORDER
     Dosage: 20 MG
     Route: 048
  17. POTASSIUM [Concomitant]
     Dosage: 20 MEQ
     Route: 048
  18. PRADAXA [Suspect]
     Indication: ANTICOAGULANT THERAPY
     Dosage: 300 MG
     Route: 048
     Dates: start: 20101201
  19. SYNTHROID [Concomitant]
     Indication: HYPOTHYROIDISM
     Dosage: 75 MCG
     Route: 048
  20. NITROGLYCERIN [Concomitant]
     Dosage: 0.4 MG
     Route: 062

REACTIONS (2)
  - GAIT DISTURBANCE [None]
  - CONTUSION [None]
